FAERS Safety Report 7782358-9 (Version None)
Quarter: 2011Q3

REPORT INFORMATION
  Report Type: 
  Country: None (occurrence: None)
  Receive Date: 20110927
  Receipt Date: 20110913
  Transmission Date: 20111222
  Serious: Yes (Other)
  Sender: FDA-Public Use
  Company Number: GB-ELI_LILLY_AND_COMPANY-GB201109003151

PATIENT
  Age: 49 Year
  Sex: Female
  Weight: 110 kg

DRUGS (5)
  1. EXENATIDE [Suspect]
     Dosage: 5 UG, UNKNOWN
     Route: 058
     Dates: start: 20110715, end: 20110715
  2. RAMIPRIL [Concomitant]
     Indication: HYPERTENSION
     Dosage: 10 MG, QD
     Route: 048
  3. METFORMIN HCL [Concomitant]
     Dosage: 500 MG, BID
     Route: 048
     Dates: start: 20000101
  4. HUMULIN N [Concomitant]
     Dosage: 10 IU, QD
     Route: 058
  5. SIMVASTATIN [Concomitant]
     Indication: HYPERCHOLESTEROLAEMIA
     Dosage: 10 MG, QD
     Route: 048

REACTIONS (3)
  - SWOLLEN TONGUE [None]
  - SWELLING FACE [None]
  - OFF LABEL USE [None]
